FAERS Safety Report 6405306-2 (Version None)
Quarter: 2009Q4

REPORT INFORMATION
  Report Type: 
  Country: None (occurrence: None)
  Receive Date: 20091019
  Receipt Date: 20091009
  Transmission Date: 20100525
  Serious: Yes (Other)
  Sender: FDA-Public Use
  Company Number: JP-ASTRAZENECA-2009SE19521

PATIENT
  Age: 32 Month
  Sex: Female

DRUGS (1)
  1. PULMICORT RESPULES [Suspect]
     Dosage: HALF AMPULE OF 0.25 MG
     Route: 055

REACTIONS (2)
  - ACCIDENTAL EXPOSURE [None]
  - ACCIDENTAL POISONING [None]
